FAERS Safety Report 26049705 (Version 3)
Quarter: 2025Q4

REPORT INFORMATION
  Report Type: Report from Study
  Country: CN (occurrence: CN)
  Receive Date: 20251115
  Receipt Date: 20251221
  Transmission Date: 20260117
  Serious: Yes (Hospitalization)
  Sender: AMGEN
  Company Number: CN-AMGEN-CHNNI2025223815

PATIENT
  Age: 62 Year
  Sex: Female
  Weight: 66.5 kg

DRUGS (7)
  1. DENOSUMAB [Suspect]
     Active Substance: DENOSUMAB
     Indication: Osteoporosis postmenopausal
     Dosage: 60 MILLIGRAM
     Route: 058
     Dates: start: 20231017
  2. CELECOXIB [Concomitant]
     Active Substance: CELECOXIB
     Dosage: 200 MILLIGRAM
     Route: 048
     Dates: start: 20231017, end: 202310
  3. Amlodipine besilate;Folic acid [Concomitant]
     Dosage: 5 MILLIGRAM
     Route: 048
     Dates: start: 20240919
  4. METOPROLOL SUCCINATE [Concomitant]
     Active Substance: METOPROLOL SUCCINATE
     Dosage: 47.5 MILLIGRAM
     Route: 048
     Dates: start: 20240919
  5. CETIRIZINE HYDROCHLORIDE [Concomitant]
     Active Substance: CETIRIZINE HYDROCHLORIDE
     Dosage: 0.01 GRAM (DROPS)
     Route: 048
     Dates: start: 20241111, end: 2024
  6. CETIRIZINE HYDROCHLORIDE [Concomitant]
     Active Substance: CETIRIZINE HYDROCHLORIDE
     Dosage: 0.01 GRAM (ORAL SOLUTION)
     Route: 048
     Dates: start: 20241111, end: 2024
  7. Yan li shuang kou han [Concomitant]
     Dosage: 50 MILLIGRAM
     Route: 060
     Dates: start: 20241111, end: 2024

REACTIONS (1)
  - Lumbar vertebral fracture [Not Recovered/Not Resolved]

NARRATIVE: CASE EVENT DATE: 20251108
